FAERS Safety Report 18378896 (Version 2)
Quarter: 2020Q4

REPORT INFORMATION
  Report Type: Spontaneous
  Country: CA (occurrence: CA)
  Receive Date: 20201013
  Receipt Date: 20201027
  Transmission Date: 20210114
  Serious: Yes (Death, Hospitalization, Other)
  Sender: FDA-Public Use
  Company Number: CA-PFIZER INC-2020212591

PATIENT
  Age: 81 Year
  Sex: Male

DRUGS (3)
  1. BOSULIF [Suspect]
     Active Substance: BOSUTINIB MONOHYDRATE
     Indication: CHRONIC MYELOID LEUKAEMIA
     Dosage: 100 MG, DAILY
  2. BOSULIF [Suspect]
     Active Substance: BOSUTINIB MONOHYDRATE
     Dosage: 200 MG, 1X/DAY
     Dates: start: 20200618
  3. OXYCODONE [Concomitant]
     Active Substance: OXYCODONE
     Indication: PAIN
     Dosage: 5 MG ONE TO TWO TAB A DAY

REACTIONS (11)
  - Pulmonary fibrosis [Not Recovered/Not Resolved]
  - Interstitial lung disease [Unknown]
  - Pneumonia aspiration [Unknown]
  - Loss of consciousness [Unknown]
  - Death [Fatal]
  - Respiratory failure [Unknown]
  - Bronchiectasis [Unknown]
  - Dyspnoea [Unknown]
  - Tracheomalacia [Unknown]
  - Pneumonia [Unknown]
  - Pleural effusion [Not Recovered/Not Resolved]
